FAERS Safety Report 5217997-2 (Version None)
Quarter: 2007Q1

REPORT INFORMATION
  Report Type: 
  Country: None (occurrence: None)
  Receive Date: 20070124
  Receipt Date: 20060324
  Transmission Date: 20070707
  Serious: Yes (Hospitalization)
  Sender: FDA-Public Use
  Company Number: US-AMGEN-US167166

PATIENT
  Sex: Male
  Weight: 119.4 kg

DRUGS (15)
  1. ARANESP [Suspect]
     Indication: DIALYSIS
     Route: 058
     Dates: start: 20051005
  2. EPOGEN [Suspect]
     Indication: DIALYSIS
     Dates: start: 20040930, end: 20051005
  3. RENAGEL [Concomitant]
  4. PLETAL [Concomitant]
     Dates: start: 20051105
  5. GLIPIZIDE [Concomitant]
     Dates: start: 20051115
  6. ALLOPURINOL SODIUM [Concomitant]
     Dates: start: 20040101
  7. CANDESARTAN [Concomitant]
     Dates: start: 20040101
  8. TOPRAL [Concomitant]
     Dates: start: 20040101
  9. ROCALTROL [Concomitant]
     Dates: start: 20050205
  10. METOCLOPRAMIDE [Concomitant]
     Dates: start: 20060117
  11. NEXIUM [Concomitant]
     Dates: start: 20050329
  12. LIPITOR [Concomitant]
     Dates: start: 20050408
  13. CLOPIDOGREL [Concomitant]
     Dates: start: 20050701
  14. ASPIRIN [Concomitant]
     Dates: start: 20040101
  15. SENSIPAR [Concomitant]
     Indication: HYPERPARATHYROIDISM SECONDARY
     Dates: start: 20050517

REACTIONS (2)
  - CHEST PAIN [None]
  - THERAPEUTIC RESPONSE DECREASED [None]
